FAERS Safety Report 23963849 (Version 1)
Quarter: 2024Q2

REPORT INFORMATION
  Report Type: Spontaneous
  Country: US (occurrence: US)
  Receive Date: 20240611
  Receipt Date: 20240611
  Transmission Date: 20240716
  Serious: Yes (Other)
  Sender: FDA-Public Use
  Company Number: US-BAUSCHBL-2024BNL028243

PATIENT
  Sex: Female

DRUGS (1)
  1. MURO 128 [Suspect]
     Active Substance: SODIUM CHLORIDE
     Indication: Product used for unknown indication
     Route: 065

REACTIONS (4)
  - Cataract [Unknown]
  - Cataract operation [Unknown]
  - Burning sensation [Unknown]
  - Eye operation [Unknown]
